FAERS Safety Report 7512836-9 (Version None)
Quarter: 2011Q2

REPORT INFORMATION
  Report Type: 
  Country: None (occurrence: None)
  Receive Date: 20110531
  Receipt Date: 20110517
  Transmission Date: 20111010
  Serious: Yes (Other)
  Sender: FDA-Public Use
  Company Number: GB-ELI_LILLY_AND_COMPANY-GB201105004589

PATIENT
  Age: 12 Year
  Sex: Male

DRUGS (1)
  1. STRATTERA [Suspect]
     Dosage: 40 MG, QD

REACTIONS (5)
  - SUICIDAL IDEATION [None]
  - SELF INJURIOUS BEHAVIOUR [None]
  - SLEEP DISORDER [None]
  - DEPRESSED MOOD [None]
  - AGITATION [None]
